FAERS Safety Report 9652967 (Version 1)
Quarter: 2013Q4

REPORT INFORMATION
  Report Type: Spontaneous
  Country: US (occurrence: US)
  Receive Date: 20131029
  Receipt Date: 20131029
  Transmission Date: 20140711
  Serious: No
  Sender: FDA-Public Use
  Company Number: US-009507513-1310USA001179

PATIENT
  Age: 19 Year
  Sex: Female
  Weight: 61.22 kg

DRUGS (3)
  1. NEXPLANON [Suspect]
     Indication: CONTRACEPTION
     Dosage: 1 ROD
     Dates: start: 20130927
  2. CELEXA [Concomitant]
  3. IRON (UNSPECIFIED) [Concomitant]

REACTIONS (1)
  - Implant site bruising [Not Recovered/Not Resolved]
